FAERS Safety Report 10189682 (Version 1)
Quarter: 2014Q2

REPORT INFORMATION
  Report Type: Spontaneous
  Country: US (occurrence: US)
  Receive Date: 20140522
  Receipt Date: 20140522
  Transmission Date: 20141212
  Serious: Yes (Hospitalization)
  Sender: FDA-Public Use
  Company Number: US-SA-2014SA030396

PATIENT
  Age: 66 Year
  Sex: Female

DRUGS (3)
  1. SOLOSTAR [Suspect]
     Indication: DEVICE THERAPY
  2. LANTUS SOLOSTAR [Suspect]
     Indication: TYPE 2 DIABETES MELLITUS
     Dosage: DOSE:15 UNIT(S)
     Route: 065
  3. LANTUS SOLOSTAR [Suspect]
     Indication: TYPE 2 DIABETES MELLITUS
     Dosage: WHEN HER BLOOD SUGAR GOES TO 300 DOSE:16 UNIT(S)
     Route: 065

REACTIONS (1)
  - Blood glucose increased [Unknown]
